FAERS Safety Report 16292024 (Version 1)
Quarter: 2019Q2

REPORT INFORMATION
  Report Type: Spontaneous
  Country: US (occurrence: US)
  Receive Date: 20190509
  Receipt Date: 20190509
  Transmission Date: 20190711
  Serious: No
  Sender: FDA-Public Use
  Company Number: US-ALKERMES INC.-ALK-2018-002613

PATIENT
  Age: 36 Year
  Sex: Female

DRUGS (1)
  1. VIVITROL [Suspect]
     Active Substance: NALTREXONE
     Indication: ALCOHOLISM
     Dosage: 380 MG, QMO
     Route: 030
     Dates: start: 20180425

REACTIONS (5)
  - Pain in extremity [Unknown]
  - Injection site pain [Unknown]
  - Dizziness [Unknown]
  - Acne [Unknown]
  - Injection site reaction [Unknown]

NARRATIVE: CASE EVENT DATE: 2018
